FAERS Safety Report 6243608-3 (Version None)
Quarter: 2009Q2

REPORT INFORMATION
  Report Type: 
  Country: None (occurrence: None)
  Receive Date: 20090624
  Receipt Date: 20090611
  Transmission Date: 20091009
  Serious: Yes (Hospitalization)
  Sender: FDA-Public Use
  Company Number: BE-PFIZER INC-2009216205

PATIENT
  Age: 86 Year

DRUGS (10)
  1. EXEMESTANE [Suspect]
     Indication: BREAST CANCER
     Dosage: 25 MG, 1X/DAY
     Route: 048
     Dates: start: 20040108
  2. ELTHYRONE [Concomitant]
     Dosage: UNK
     Route: 048
  3. ASAFLOW [Concomitant]
     Dosage: UNK
     Route: 048
  4. TEMESTA [Concomitant]
     Dosage: UNK
     Route: 048
     Dates: start: 20040123
  5. LOSFERRON [Concomitant]
     Dosage: UNK
     Route: 048
     Dates: start: 20040319
  6. OMEPRAZOLE [Concomitant]
     Dosage: UNK
     Route: 048
     Dates: start: 20040319
  7. CALCIUM WITH VITAMIN D [Concomitant]
     Dosage: UNK
     Route: 048
     Dates: start: 20061229
  8. NULYTELY [Concomitant]
     Dosage: UNK
     Route: 048
     Dates: start: 20080129, end: 20090109
  9. DAFALGAN [Concomitant]
     Dosage: UNK
     Route: 048
     Dates: start: 20080129, end: 20090109
  10. FERROGRADUMET [Concomitant]
     Dosage: UNK
     Route: 048
     Dates: start: 20080129, end: 20080418

REACTIONS (1)
  - MIGRAINE [None]
